FAERS Safety Report 11223276 (Version 1)
Quarter: 2015Q2

REPORT INFORMATION
  Report Type: Spontaneous
  Country: US (occurrence: US)
  Receive Date: 20150626
  Receipt Date: 20150626
  Transmission Date: 20150821
  Serious: Yes (Other)
  Sender: FDA-Public Use
  Company Number: US-BIOMARINAP-US-2015-106677

PATIENT
  Age: 33 Year
  Sex: Female

DRUGS (1)
  1. NAGLAZYME [Suspect]
     Active Substance: GALSULFASE
     Indication: MUCOPOLYSACCHARIDOSIS VI
     Dosage: UNK
     Route: 042

REACTIONS (4)
  - Exposure during pregnancy [Recovered/Resolved]
  - Peripartum cardiomyopathy [Unknown]
  - Hyperemesis gravidarum [Unknown]
  - Hypothyroidism [Unknown]
